FAERS Safety Report 12530896 (Version 3)
Quarter: 2016Q3

REPORT INFORMATION
  Report Type: Report from Study
  Country: US (occurrence: US)
  Receive Date: 20160706
  Receipt Date: 20160810
  Transmission Date: 20161109
  Serious: Yes (Hospitalization, Other)
  Sender: FDA-Public Use
  Company Number: US-GILEAD-2016-0210937

PATIENT
  Age: 45 Year
  Sex: Female

DRUGS (24)
  1. TYVASO [Concomitant]
     Active Substance: TREPROSTINIL
  2. BARACLUDE [Concomitant]
     Active Substance: ENTECAVIR
  3. SILDENAFIL. [Concomitant]
     Active Substance: SILDENAFIL
  4. PROTONIX                           /00661201/ [Concomitant]
     Active Substance: OMEPRAZOLE
  5. POTASSIUM CHLORIDE. [Concomitant]
     Active Substance: POTASSIUM CHLORIDE
  6. ALDACTONE [Concomitant]
     Active Substance: SPIRONOLACTONE
  7. REVATIO [Concomitant]
     Active Substance: SILDENAFIL CITRATE
  8. TYLENOL [Concomitant]
     Active Substance: ACETAMINOPHEN
  9. MAGNESIUM OXIDE. [Concomitant]
     Active Substance: MAGNESIUM OXIDE
  10. ALBUMIN (HUMAN) [Concomitant]
     Active Substance: ALBUMIN HUMAN
  11. DEMADEX [Concomitant]
     Active Substance: TORSEMIDE
  12. CHOLECALCIFEROL [Concomitant]
     Active Substance: CHOLECALCIFEROL
  13. ATROVENT HFA [Concomitant]
     Active Substance: IPRATROPIUM BROMIDE
  14. ZOSYN [Concomitant]
     Active Substance: PIPERACILLIN SODIUM\TAZOBACTAM SODIUM
  15. PREVACID [Concomitant]
     Active Substance: LANSOPRAZOLE
  16. LEXISCAN [Concomitant]
     Active Substance: REGADENOSON
  17. FERROUS GLUCONATE [Concomitant]
     Active Substance: FERROUS GLUCONATE
  18. AMINOPHILLINE [Concomitant]
     Active Substance: AMINOPHYLLINE
  19. AMBRISENTAN [Suspect]
     Active Substance: AMBRISENTAN
     Indication: PULMONARY HYPERTENSION
     Dosage: 5 MG, QD
     Route: 048
     Dates: start: 20160226
  20. VITAMIN C [Concomitant]
     Active Substance: ASCORBIC ACID
  21. ENULOSE [Concomitant]
     Active Substance: LACTULOSE
  22. XIFAXAN [Concomitant]
     Active Substance: RIFAXIMIN
  23. SODIUM CHLORIDE. [Concomitant]
     Active Substance: SODIUM CHLORIDE
  24. FERROUS SULFATE. [Concomitant]
     Active Substance: FERROUS SULFATE

REACTIONS (8)
  - Nausea [Unknown]
  - Swelling face [Recovered/Resolved]
  - Blood creatinine increased [Unknown]
  - Headache [Unknown]
  - Chronic hepatic failure [Recovered/Resolved]
  - Cough [Not Recovered/Not Resolved]
  - Muscle spasms [Unknown]
  - Hyponatraemia [Unknown]

NARRATIVE: CASE EVENT DATE: 20160701
